FAERS Safety Report 10934159 (Version 1)
Quarter: 2015Q1

REPORT INFORMATION
  Report Type: Spontaneous
  Country: GB (occurrence: GB)
  Receive Date: 20150320
  Receipt Date: 20150320
  Transmission Date: 20150721
  Serious: Yes (Other)
  Sender: FDA-Public Use
  Company Number: GB-TEVA-547874ACC

PATIENT
  Age: 19 Year
  Sex: Female
  Weight: 63 kg

DRUGS (11)
  1. ADAPALENE. [Concomitant]
     Active Substance: ADAPALENE
     Dosage: 1 DOSAGE FORMS DAILY; TAKEN IN THE MORNING. DAILY DOSE 1 DOSAGE FORMS
     Dates: start: 20130122
  2. OMEPRAZOLE. [Concomitant]
     Active Substance: OMEPRAZOLE
     Dates: start: 20120718
  3. SALBUTAMOL [Concomitant]
     Active Substance: ALBUTEROL
     Dosage: TWO PUFFS FOUR TIMES A DAY WHEN NECESSARY.
     Route: 055
     Dates: start: 20140623
  4. NAPROXEN. [Suspect]
     Active Substance: NAPROXEN
     Dosage: 2 DOSAGE FORMS DAILY;
     Dates: start: 20140623
  5. AMITRIPTYLINE HYDROCHLORIDE. [Concomitant]
     Active Substance: AMITRIPTYLINE HYDROCHLORIDE
     Dosage: 3 DOSAGE FORMS DAILY; 3 TABLETS AT NIGHT. DAILY DOSE 3 DOSAGE FORMS
     Route: 048
     Dates: start: 20141222
  6. CLENIL MODULITE [Concomitant]
     Active Substance: BECLOMETHASONE DIPROPIONATE
     Dosage: 4 DOSAGE FORMS DAILY;
     Route: 055
     Dates: start: 20140623
  7. CO-DYDRAMOL [Concomitant]
     Active Substance: ACETAMINOPHEN\DIHYDROCODEINE
     Dosage: TAKE 1 OR 2 4 TIMES/DAY.
     Dates: start: 20150205, end: 20150212
  8. CINNARIZINE [Concomitant]
     Active Substance: CINNARIZINE
     Dosage: 2 TO BE TAKEN THREE TIMES DAILY AS REQUIRED.
     Dates: start: 20150205, end: 20150206
  9. ERYTHROMYCIN. [Concomitant]
     Active Substance: ERYTHROMYCIN
     Dosage: TWICE A DAY AND THEN INCREASED AS ADVISED.
     Dates: start: 20130122, end: 20150205
  10. AZELAIC ACID [Concomitant]
     Active Substance: AZELAIC ACID
     Dosage: 1 DOSAGE FORMS DAILY; TAKEN AT NIGHT. DAILY DOSE 1 DOSAGE FORMS
     Dates: start: 20130122
  11. PARACETAMOL [Concomitant]
     Active Substance: ACETAMINOPHEN
     Dosage: TWO TO BE TAKEN FOUR TIMES A DAY AS REQUIRED.
     Dates: start: 20120718

REACTIONS (2)
  - Gastrointestinal disorder [Unknown]
  - Chest discomfort [Unknown]

NARRATIVE: CASE EVENT DATE: 20150304
